FAERS Safety Report 6706767-1 (Version None)
Quarter: 2010Q2

REPORT INFORMATION
  Report Type: 
  Country: None (occurrence: None)
  Receive Date: 20100503
  Receipt Date: 20100427
  Transmission Date: 20101027
  Serious: Yes (Hospitalization)
  Sender: FDA-Public Use
  Company Number: JP-ASTRAZENECA-2010SE19017

PATIENT
  Age: 60 Year
  Sex: Female

DRUGS (9)
  1. CRESTOR [Suspect]
     Route: 048
  2. FLOMOX [Suspect]
     Route: 048
  3. THYRADIN S [Suspect]
     Route: 048
  4. URINORM [Suspect]
     Route: 048
  5. COMELIAN [Suspect]
     Route: 048
  6. AMLODIN [Suspect]
     Route: 048
  7. DASEN [Suspect]
     Route: 048
  8. COCARL [Suspect]
     Route: 048
  9. BIOFERMIN [Suspect]
     Route: 048

REACTIONS (2)
  - RHABDOMYOLYSIS [None]
  - STEVENS-JOHNSON SYNDROME [None]
